FAERS Safety Report 9698799 (Version 2)
Quarter: 2013Q4

REPORT INFORMATION
  Report Type: Spontaneous
  Country: JP (occurrence: JP)
  Receive Date: 20131120
  Receipt Date: 20131120
  Transmission Date: 20140711
  Serious: Yes (Hospitalization)
  Sender: FDA-Public Use
  Company Number: JP-UCBSA-099180

PATIENT
  Age: 46 Year
  Sex: Male
  Weight: 61 kg

DRUGS (6)
  1. E KEPPRA [Suspect]
     Indication: POST-TRAUMATIC EPILEPSY
     Route: 048
     Dates: start: 20120920, end: 20130918
  2. EXCEGRAN [Concomitant]
     Dosage: DAILY DOSE: 200 MG
     Route: 048
     Dates: start: 20120920
  3. VEEN-F [Concomitant]
     Dosage: 500ML
     Route: 042
     Dates: start: 20130907, end: 20130908
  4. MEYLON [Concomitant]
     Route: 042
     Dates: start: 20130907, end: 20130908
  5. TRAVELMIN [Concomitant]
     Route: 048
     Dates: start: 20130907, end: 20130914
  6. CEPHADOL [Concomitant]
     Route: 048
     Dates: start: 20130907, end: 20130914

REACTIONS (10)
  - Dizziness [Recovered/Resolved]
  - Restlessness [Recovered/Resolved]
  - Agitation [Recovered/Resolved]
  - Aggression [Recovered/Resolved]
  - Confusional state [Recovered/Resolved]
  - Hallucination [Recovered/Resolved]
  - Irritability [Recovered/Resolved]
  - Blood creatine phosphokinase increased [Recovered/Resolved]
  - Hyponatraemia [Recovered/Resolved]
  - Pyrexia [Recovered/Resolved]
